FAERS Safety Report 10458394 (Version 1)
Quarter: 2014Q3

REPORT INFORMATION
  Report Type: Spontaneous
  Country: US (occurrence: US)
  Receive Date: 20140917
  Receipt Date: 20140917
  Transmission Date: 20150326
  Serious: Yes (Hospitalization)
  Sender: FDA-Public Use
  Company Number: US-ROCHE-1462315

PATIENT
  Age: 63 Year
  Sex: Female

DRUGS (2)
  1. ZELBORAF [Suspect]
     Active Substance: VEMURAFENIB
     Indication: METASTATIC MALIGNANT MELANOMA
     Route: 048
     Dates: start: 20140605
  2. ZELBORAF [Suspect]
     Active Substance: VEMURAFENIB
     Dosage: 720MG TWICE A DAY
     Route: 048

REACTIONS (2)
  - Skin disorder [Unknown]
  - Convulsion [Not Recovered/Not Resolved]

NARRATIVE: CASE EVENT DATE: 20140913
